FAERS Safety Report 7959446-7 (Version None)
Quarter: 2011Q4

REPORT INFORMATION
  Report Type: 
  Country: None (occurrence: None)
  Receive Date: 20111206
  Receipt Date: 20111202
  Transmission Date: 20120403
  Serious: No
  Sender: FDA-Public Use
  Company Number: US-PFIZER INC-2011295072

PATIENT
  Sex: Female
  Weight: 99.773 kg

DRUGS (2)
  1. ADVIL CONGESTION RELIEF [Suspect]
     Indication: INFLUENZA
     Dosage: UNK
     Dates: start: 20111126, end: 20111127
  2. DAYPRO [Concomitant]
     Dosage: UNK

REACTIONS (1)
  - DRUG INEFFECTIVE [None]
